FAERS Safety Report 25138993 (Version 4)
Quarter: 2025Q4

REPORT INFORMATION
  Report Type: Spontaneous
  Country: US (occurrence: US)
  Receive Date: 20250331
  Receipt Date: 20251018
  Transmission Date: 20260118
  Serious: No
  Sender: SANOFI AVENTIS
  Company Number: US-SA-2025SA091614

PATIENT
  Age: 3 Year
  Sex: Female

DRUGS (2)
  1. DUPIXENT [Suspect]
     Active Substance: DUPILUMAB
     Indication: Eczema
     Dosage: 300 MG, Q4W
     Route: 058
     Dates: start: 20250117
  2. DUPIXENT [Suspect]
     Active Substance: DUPILUMAB
     Indication: Dermatitis allergic
     Dosage: 300 MG, QM
     Route: 058
     Dates: start: 2025

REACTIONS (8)
  - Eczema [Unknown]
  - Therapeutic response shortened [Unknown]
  - Pruritus [Not Recovered/Not Resolved]
  - Therapeutic response shortened [Unknown]
  - Dermatitis allergic [Unknown]
  - Condition aggravated [Unknown]
  - Rash [Unknown]
  - Inappropriate schedule of product administration [Unknown]

NARRATIVE: CASE EVENT DATE: 20250101
